FAERS Safety Report 22034087 (Version 1)
Quarter: 2023Q1

REPORT INFORMATION
  Report Type: Spontaneous
  Country: US (occurrence: US)
  Receive Date: 20230224
  Receipt Date: 20230224
  Transmission Date: 20230418
  Serious: No
  Sender: FDA-Public Use
  Company Number: US-GALDERMA-US2023001751

PATIENT

DRUGS (5)
  1. PROACTIV MD ADAPALENE ACNE TREATMENT [Suspect]
     Active Substance: ADAPALENE
     Indication: Acne
     Dosage: 1 DOSAGE FORM, ONCE A DAY, AT NIGHT, IN A DIME SIZED AMOUNT
     Route: 061
     Dates: start: 202201, end: 202209
  2. Proactiv MD Ultra Gentle Cleanser [Concomitant]
     Indication: Acne
     Dosage: 1 DOSAGE FORM, BETWEEN ONCE AND TWICE A DAY
     Route: 061
     Dates: start: 202201, end: 202209
  3. Proactiv MD Ultra Gentle Cleanser [Concomitant]
     Dosage: 1 DOSAGE FORM, BETWEEN ONCE AND TWICE A DAY
     Route: 061
     Dates: start: 202201, end: 202209
  4. Proactiv MD Ultra Hydrating Moisturizer [Concomitant]
     Indication: Acne
     Dosage: 1 DOSAGE FORM, BETWEEN ONCE AND TWICE A DAY
     Route: 061
     Dates: start: 202201, end: 202209
  5. Proactiv MD Ultra Hydrating Moisturizer [Concomitant]
     Dosage: 1 DOSAGE FORM, BETWEEN ONCE AND TWICE A DAY
     Route: 061
     Dates: start: 202201, end: 202209

REACTIONS (1)
  - Drug ineffective [Unknown]
